FAERS Safety Report 5371314-6 (Version None)
Quarter: 2007Q2

REPORT INFORMATION
  Report Type: 
  Country: None (occurrence: None)
  Receive Date: 20070615
  Receipt Date: 20060929
  Transmission Date: 20071010
  Serious: Yes (Other)
  Sender: FDA-Public Use
  Company Number: 200618274US

PATIENT
  Age: 61 Year
  Sex: Female
  Weight: 53.63 kg

DRUGS (10)
  1. LANTUS [Suspect]
     Indication: DIABETES MELLITUS INSULIN-DEPENDENT
     Dosage: 12 U
     Dates: start: 20060908, end: 20061001
  2. LANTUS [Suspect]
     Indication: DIABETES MELLITUS INSULIN-DEPENDENT
     Dosage: 15 U
     Dates: start: 20060901, end: 20060901
  3. LANTUS [Suspect]
     Indication: DIABETES MELLITUS INSULIN-DEPENDENT
     Dosage: 18 U/A FEW DAYS
     Dates: start: 20060901, end: 20061001
  4. LISINOPRIL [Concomitant]
  5. ATORVASTATIN CALCIUM (LIPITOR) [Concomitant]
  6. TIZANIDINE HCL [Concomitant]
  7. METHADONE HYDROCHLORIDE (METHADOSE) [Concomitant]
  8. LYRICA [Concomitant]
  9. HUMALOG [Concomitant]
  10. INSULIN [Concomitant]

REACTIONS (2)
  - BLOOD GLUCOSE DECREASED [None]
  - HYPERGLYCAEMIA [None]
